FAERS Safety Report 21922026 (Version 4)
Quarter: 2023Q2

REPORT INFORMATION
  Report Type: Spontaneous
  Country: FR (occurrence: FR)
  Receive Date: 20230127
  Receipt Date: 20230509
  Transmission Date: 20230722
  Serious: Yes (Life-Threatening, Other)
  Sender: FDA-Public Use
  Company Number: FR-CELLTRION INC.-2023FR001363

PATIENT

DRUGS (9)
  1. TRASTUZUMAB [Suspect]
     Active Substance: TRASTUZUMAB
     Indication: HER2 positive breast cancer
     Dosage: UNK DOSAGE1: UNIT=NOT AVAILABLE
     Dates: start: 2013, end: 201902
  2. TRASTUZUMAB [Suspect]
     Active Substance: TRASTUZUMAB
     Indication: Invasive ductal breast carcinoma
  3. XGEVA [Suspect]
     Active Substance: DENOSUMAB
     Indication: Metastases to bone
     Dosage: 120 MG DOSAGE1: UNIT=NOT AVAILABLE
     Dates: start: 2013, end: 201812
  4. DOCETAXEL [Suspect]
     Active Substance: DOCETAXEL
     Indication: Invasive ductal breast carcinoma
     Dosage: UNK
     Dates: start: 2013, end: 201902
  5. ANASTROZOLE [Suspect]
     Active Substance: ANASTROZOLE
     Indication: Invasive ductal breast carcinoma
     Dosage: UNK
     Dates: start: 2013, end: 201902
  6. EPIRUBICIN [Suspect]
     Active Substance: EPIRUBICIN
     Indication: Invasive ductal breast carcinoma
     Dosage: UNK
     Dates: start: 2013, end: 201902
  7. CYCLOPHOSPHAMIDE [Suspect]
     Active Substance: CYCLOPHOSPHAMIDE
     Indication: Invasive ductal breast carcinoma
     Dosage: UNK
     Dates: start: 2013, end: 201902
  8. SELPERCATINIB [Concomitant]
     Active Substance: SELPERCATINIB
     Dosage: 320 MG/DAY
     Dates: start: 201909
  9. HYDROCORTISONE [Concomitant]
     Active Substance: HYDROCORTISONE
     Dosage: 10 MG,PER DAY

REACTIONS (11)
  - Cushing^s syndrome [Recovered/Resolved]
  - Paraneoplastic syndrome [Recovered/Resolved]
  - Femur fracture [Unknown]
  - Medullary thyroid cancer [Unknown]
  - Thyroid cancer metastatic [Recovering/Resolving]
  - Osteonecrosis of jaw [Unknown]
  - Diarrhoea [Recovered/Resolved]
  - Gene mutation [Unknown]
  - Fatigue [Unknown]
  - Headache [Unknown]
  - Diarrhoea [Recovered/Resolved]

NARRATIVE: CASE EVENT DATE: 20181201
